FAERS Safety Report 9513658 (Version 2)
Quarter: 2014Q1

REPORT INFORMATION
  Report Type: Spontaneous
  Country: US (occurrence: None)
  Receive Date: 20130305
  Receipt Date: 20140306
  Transmission Date: 20141002
  Serious: Yes (Death, Other)
  Sender: FDA-Public Use
  Company Number: 163-21880-12110309

PATIENT
  Age: 71 Year
  Sex: Male
  Weight: 91.17 kg

DRUGS (30)
  1. REVLIMID [Suspect]
     Indication: PLASMA CELL MYELOMA
     Dosage: 10 MG, 21 IN 21 D, PO
     Route: 048
     Dates: start: 20071108
  2. JANUVIA (SITAGLIPTIN PHOSPHAE) (UNKNOWN) [Concomitant]
  3. AVANDIA (ROSIGLITAZONE MALEATE) (UNKNOWN) [Concomitant]
  4. MORPHINE SULFATE (MORPHINE SULFATE) (UNKNOWN) [Concomitant]
  5. DEXAMETHASONE (DEXAMETHAASONE) (UNKNOWN) [Concomitant]
  6. FUROSEMIDE (FUROSEMIDE) (UNKNOWN) [Concomitant]
  7. GABAPENTIN (GABAPENTIN) (UNKNOWN) (GABAPENTIN) [Concomitant]
  8. SUCRALFATE (SUCRALFATE) (UNKNOWN) [Concomitant]
  9. CEPHALEXIN (CEFALEXIN) (UNKNOWN) [Concomitant]
  10. OXYBUTYNIN (OXYBUTYNIN) (UNKNOWN) [Concomitant]
  11. FENTANYL (FENTANYL) (UNKNOWN) (FENTANYL) [Concomitant]
  12. TAMSULOSIN (TAMSULOSIN) (UNKNOWN) [Concomitant]
  13. GLIPIZIDE (GLIPIZIDE) (UNKNOWN) [Concomitant]
  14. SERTRALINE (SERTRALINE) (UNKNOWN) [Concomitant]
  15. ALLOPURINOL (ALLOPURINOL) (UNKNOWN) [Concomitant]
  16. CLONIDINE (CLONIDINE) (UNKNOWN) [Concomitant]
  17. OXYCODONE (OXYCODONE) (UNKNOWN) (OXYCODONE) [Concomitant]
  18. AREDIA (PAMIDRONATE DISODIUM) [Concomitant]
  19. ZOMETA (ZOLEDRONIC ACID) [Concomitant]
  20. CYANOCOBALAMIN [Concomitant]
  21. DETROL LA (TOLTERODINE L-TARTRATE) [Concomitant]
  22. CARAFATE (SUCRALFATE) [Concomitant]
  23. ZOLOFT (SERTRALINE HYDROCHLORIDE) [Concomitant]
  24. COLACE (DOCUSATE SODIUM) [Concomitant]
  25. FLOMAX (TAMSULOSIN HYDROCHLORIDE) [Concomitant]
  26. DITROPAN XL (OXYBUTYNIN HYDROCHLORIDE) [Concomitant]
  27. CARBOXYMETHYLCELLULOSE SODIUM (CARMELLOSE SODIUM) [Concomitant]
  28. MULTIVITAMINS WITH MINERALS [Suspect]
  29. CARBOXYMETHYLCELLULOSE SODIUM (CARMELLOSE SODIUM) [Concomitant]
  30. ASCORBIC ACID WITH ROSE HIPS [Suspect]

REACTIONS (6)
  - Bedridden [None]
  - Drug intolerance [None]
  - Cerebrovascular accident [None]
  - Treatment failure [None]
  - Adverse drug reaction [None]
  - Anxiety [None]
